FAERS Safety Report 23635594 (Version 3)
Quarter: 2024Q2

REPORT INFORMATION
  Report Type: Report from Study
  Country: US (occurrence: US)
  Receive Date: 20240315
  Receipt Date: 20240401
  Transmission Date: 20240716
  Serious: Yes (Hospitalization)
  Sender: FDA-Public Use
  Company Number: US-ARGENX-2024-ARGX-US001543

PATIENT

DRUGS (2)
  1. VYVGART [Suspect]
     Active Substance: EFGARTIGIMOD ALFA-FCAB
     Indication: Myasthenia gravis
     Dosage: UNK
     Route: 042
  2. MAGNESIUM CITRATE [Suspect]
     Active Substance: MAGNESIUM CITRATE
     Indication: Constipation
     Route: 065

REACTIONS (3)
  - Myasthenia gravis crisis [Unknown]
  - Poor venous access [Unknown]
  - Constipation [Unknown]
